FAERS Safety Report 7091400-2 (Version None)
Quarter: 2010Q4

REPORT INFORMATION
  Report Type: 
  Country: None (occurrence: None)
  Receive Date: 20101109
  Receipt Date: 20101104
  Transmission Date: 20110411
  Serious: Yes (Other)
  Sender: FDA-Public Use
  Company Number: A0891337A

PATIENT
  Age: 27 Year
  Sex: Female

DRUGS (1)
  1. LAMICTAL [Suspect]
     Dosage: 100MG UNKNOWN
     Route: 048
     Dates: start: 20090715

REACTIONS (2)
  - CONVULSION [None]
  - TREATMENT NONCOMPLIANCE [None]
